FAERS Safety Report 18232946 (Version 1)
Quarter: 2020Q3

REPORT INFORMATION
  Report Type: Spontaneous
  Country: CN (occurrence: CN)
  Receive Date: 20200904
  Receipt Date: 20200904
  Transmission Date: 20201103
  Serious: Yes (Other)
  Sender: FDA-Public Use
  Company Number: CN-PFIZER INC-2020341202

PATIENT
  Age: 40 Year
  Sex: Male
  Weight: 90 kg

DRUGS (4)
  1. ZOLOFT [Suspect]
     Active Substance: SERTRALINE HYDROCHLORIDE
     Indication: DEPRESSION
     Dosage: 50 MG, 1X/DAY
     Route: 048
     Dates: start: 20200806, end: 20200815
  2. TANSHINONE IIA SODIUM SULFONATE [Concomitant]
     Indication: THERAPEUTIC PROCEDURE
     Dosage: 40 MG, 1X/DAY
     Route: 041
     Dates: start: 20200803, end: 20200815
  3. ROSUVASTATIN CALCIUM. [Suspect]
     Active Substance: ROSUVASTATIN CALCIUM
     Indication: PLAQUE SHIFT
     Dosage: 10 MG, 1X/DAY
     Route: 048
     Dates: start: 20200803, end: 20200814
  4. YI SU [Concomitant]
     Indication: HYPERTENSION
     Dosage: 10 MG, 2X/DAY
     Route: 048
     Dates: start: 20200803, end: 20200818

REACTIONS (4)
  - Rash [Recovering/Resolving]
  - Dermatitis [Recovering/Resolving]
  - Pruritus [Recovering/Resolving]
  - Erythema multiforme [Recovering/Resolving]

NARRATIVE: CASE EVENT DATE: 20200813
